FAERS Safety Report 13227759 (Version 1)
Quarter: 2017Q1

REPORT INFORMATION
  Report Type: Spontaneous
  Country: AE (occurrence: AE)
  Receive Date: 20170213
  Receipt Date: 20170213
  Transmission Date: 20170428
  Serious: Yes (Other)
  Sender: FDA-Public Use
  Company Number: PHHY2017AE021116

PATIENT

DRUGS (1)
  1. EXJADE [Suspect]
     Active Substance: DEFERASIROX
     Indication: PRODUCT USED FOR UNKNOWN INDICATION
     Dosage: 33 MG/KG, QD
     Route: 048
     Dates: start: 20160724, end: 20170112

REACTIONS (10)
  - Abdominal pain [Unknown]
  - Renal tubular acidosis [Not Recovered/Not Resolved]
  - Vomiting [Unknown]
  - Diarrhoea [Unknown]
  - Gastroenteritis [Unknown]
  - Hypoglycaemia [Unknown]
  - Acidosis [Unknown]
  - Nausea [Unknown]
  - Hypokalaemia [Unknown]
  - Dehydration [Unknown]

NARRATIVE: CASE EVENT DATE: 20170202
